FAERS Safety Report 19265455 (Version 1)
Quarter: 2021Q2

REPORT INFORMATION
  Report Type: Spontaneous
  Country: US (occurrence: US)
  Receive Date: 20210517
  Receipt Date: 20210517
  Transmission Date: 20210717
  Serious: Yes (Other)
  Sender: FDA-Public Use
  Company Number: US-PURDUE-USA-2021-0258563

PATIENT
  Sex: Female

DRUGS (1)
  1. SENOKOT?S [Suspect]
     Active Substance: DOCUSATE SODIUM\SENNOSIDES
     Indication: PRODUCT USED FOR UNKNOWN INDICATION
     Dosage: 10 TABLET, DAILY
     Route: 048

REACTIONS (8)
  - Thirst [Unknown]
  - Oesophageal disorder [Unknown]
  - Cough [Unknown]
  - Off label use [Unknown]
  - Abdominal distension [Unknown]
  - Dry mouth [Unknown]
  - Drug dependence [Unknown]
  - Gastrointestinal tract irritation [Unknown]
